FAERS Safety Report 8292467-6 (Version None)
Quarter: 2012Q2

REPORT INFORMATION
  Report Type: 
  Country: None (occurrence: None)
  Receive Date: 20120417
  Receipt Date: 20111007
  Transmission Date: 20120825
  Serious: No
  Sender: FDA-Public Use
  Company Number: US-ASTRAZENECA-2011SE60721

PATIENT
  Age: 16389 Day
  Sex: Male

DRUGS (9)
  1. LANTUS [Concomitant]
  2. ASPIRIN [Concomitant]
  3. AMLODIPINE [Concomitant]
  4. PLAVIX [Concomitant]
  5. NEXIUM [Suspect]
     Route: 048
  6. BENICAR [Concomitant]
  7. PRAVASTATIN [Concomitant]
  8. PROAIR HFA [Concomitant]
  9. METFORMIN HCL [Concomitant]

REACTIONS (12)
  - HYPERLIPIDAEMIA [None]
  - PAIN [None]
  - OEDEMA [None]
  - RENAL FAILURE CHRONIC [None]
  - GASTROOESOPHAGEAL REFLUX DISEASE [None]
  - TYPE 1 DIABETES MELLITUS [None]
  - CARDIOMYOPATHY [None]
  - CHEST DISCOMFORT [None]
  - CORONARY ARTERY DISEASE [None]
  - ESSENTIAL HYPERTENSION [None]
  - SLEEP APNOEA SYNDROME [None]
  - DEPRESSION [None]
